FAERS Safety Report 9532236 (Version 1)
Quarter: 2013Q3

REPORT INFORMATION
  Report Type: Spontaneous
  Country: US (occurrence: US)
  Receive Date: 20130918
  Receipt Date: 20130918
  Transmission Date: 20140515
  Serious: No
  Sender: FDA-Public Use
  Company Number: US-B.I. PHARMACEUTICALS,INC./RIDGEFIELD-2013-BI-28287BP

PATIENT
  Sex: Male
  Weight: 32 kg

DRUGS (1)
  1. CATAPRES TTS [Suspect]
     Indication: PSYCHOMOTOR HYPERACTIVITY
     Dosage: STRENGTH: 5.0 MG (0.2 MG / DAY); DAILY DOSE: 5.0MG
     Route: 061
     Dates: start: 2008

REACTIONS (1)
  - Off label use [Not Recovered/Not Resolved]
